FAERS Safety Report 4452293-2 (Version None)
Quarter: 2004Q3

REPORT INFORMATION
  Report Type: 
  Country: None (occurrence: None)
  Receive Date: 20040917
  Receipt Date: 20040622
  Transmission Date: 20050211
  Serious: Yes (Other)
  Sender: FDA-Public Use
  Company Number: JP-ROCHE-371880

PATIENT
  Age: 71 Year
  Sex: Male
  Weight: 57 kg

DRUGS (7)
  1. ROCEPHIN [Suspect]
     Indication: CHOLANGITIS
     Route: 041
     Dates: start: 20040613, end: 20040613
  2. ROCEPHIN [Suspect]
     Route: 041
     Dates: start: 20040614, end: 20040614
  3. TRINOSIN [Concomitant]
     Indication: SUDDEN HEARING LOSS
     Route: 041
     Dates: start: 20040602, end: 20040612
  4. VITAMEDIN [Concomitant]
     Indication: SUDDEN HEARING LOSS
     Dosage: FORM REPORTED AS VIAL.
     Route: 041
     Dates: start: 20040602, end: 20040612
  5. VOLTAREN [Concomitant]
     Dosage: .
     Route: 054
     Dates: start: 20040612, end: 20040612
  6. PREDONINE [Concomitant]
     Indication: SUDDEN HEARING LOSS
     Dosage: 02-03 JUN 2004: 200 MG ONCE DAILY. 04 -05 JUN 2004: 150 MG ONCE DAILY. 06-07 JUN 2004: 100 MG ONCE +
     Route: 041
     Dates: start: 20040602
  7. ZANTAC [Concomitant]
     Indication: GASTRIC ULCER
     Route: 048

REACTIONS (11)
  - ASTHENIA [None]
  - DEPRESSED LEVEL OF CONSCIOUSNESS [None]
  - DIABETES MELLITUS [None]
  - DIZZINESS [None]
  - DRUG ERUPTION [None]
  - GENERALISED OEDEMA [None]
  - PYREXIA [None]
  - RENAL FAILURE ACUTE [None]
  - SEPSIS [None]
  - SWELLING [None]
  - URINARY INCONTINENCE [None]
